FAERS Safety Report 20677422 (Version 2)
Quarter: 2022Q2

REPORT INFORMATION
  Report Type: Spontaneous
  Country: IT (occurrence: IT)
  Receive Date: 20220406
  Receipt Date: 20220511
  Transmission Date: 20220720
  Serious: Yes (Hospitalization, Other)
  Sender: FDA-Public Use
  Company Number: None

PATIENT
  Age: 75 Year
  Sex: Male

DRUGS (7)
  1. CLOPIDOGREL BISULFATE [Suspect]
     Active Substance: CLOPIDOGREL BISULFATE
     Dosage: 1 DF
     Route: 048
  2. ASPIRIN [Suspect]
     Active Substance: ASPIRIN
     Dosage: 1 DF
     Route: 048
  3. ATORVASTATIN [Concomitant]
     Active Substance: ATORVASTATIN
     Dosage: UNK
  4. LANSOPRAZOLE [Concomitant]
     Active Substance: LANSOPRAZOLE
     Dosage: UNK
  5. PAROXETINE [Concomitant]
     Active Substance: PAROXETINE
     Dosage: UNK
  6. KAYEXALATE [Concomitant]
     Active Substance: SODIUM POLYSTYRENE SULFONATE
     Dosage: UNK
  7. AMLODIPINE [Concomitant]
     Active Substance: AMLODIPINE BESYLATE
     Dosage: UNK

REACTIONS (3)
  - Haematemesis [Recovering/Resolving]
  - Anaemia [Recovering/Resolving]
  - Gastric ulcer [Recovering/Resolving]

NARRATIVE: CASE EVENT DATE: 20220119
